FAERS Safety Report 8490679 (Version 11)
Quarter: 2013Q4

REPORT INFORMATION
  Report Type: Report from Study
  Country: CA (occurrence: CA)
  Receive Date: 20120403
  Receipt Date: 20131003
  Transmission Date: 20140711
  Serious: Yes (Death, Other)
  Sender: FDA-Public Use
  Company Number: PHHY2011CA82855

PATIENT
  Age: 76 Year
  Sex: Female

DRUGS (9)
  1. SANDOSTATIN LAR [Suspect]
     Indication: NEUROENDOCRINE TUMOUR
     Dosage: 30 MG, QMO
     Route: 030
     Dates: start: 20110621
  2. SANDOSTATIN LAR [Suspect]
     Dosage: 30 MG, EVERY 4 WEEKS
     Route: 030
     Dates: end: 20130906
  3. IRESSA [Suspect]
     Dosage: UNK UKN, UNK
  4. PEMETREXED [Concomitant]
     Dosage: UNK UKN, UNK
     Dates: start: 20130506
  5. DECADRON [Concomitant]
     Dosage: UNK UKN, UNK
  6. VITAMIN B12 [Concomitant]
     Dosage: UNK UKN, UNK
  7. FOLIC ACID [Concomitant]
     Dosage: UNK UKN, UNK
  8. JANUVIA [Concomitant]
     Dosage: UNK UKN, UNK
  9. CHEMOTHERAPEUTICS [Concomitant]
     Dosage: UNK UKN, UNK
     Dates: start: 20130729

REACTIONS (18)
  - Aneurysm [Fatal]
  - Cardiac disorder [Fatal]
  - Lung neoplasm [Unknown]
  - Neoplasm [Unknown]
  - Blood glucose increased [Unknown]
  - Blood magnesium decreased [Unknown]
  - Blood potassium increased [Unknown]
  - Skin discolouration [Unknown]
  - Nasal congestion [Unknown]
  - Cataract [Unknown]
  - Cough [Unknown]
  - Fall [Unknown]
  - Musculoskeletal pain [Unknown]
  - Blood pressure systolic increased [Unknown]
  - Dyspnoea [Unknown]
  - Blood glucose fluctuation [Unknown]
  - Fatigue [Unknown]
  - Decreased appetite [Unknown]
